FAERS Safety Report 5914579-1 (Version None)
Quarter: 2008Q3

REPORT INFORMATION
  Report Type: 
  Country: None (occurrence: None)
  Receive Date: 20080909
  Receipt Date: 20071008
  Transmission Date: 20090109
  Serious: Yes (Hospitalization)
  Sender: FDA-Public Use
  Company Number: 163-20785-07100429 (0)

PATIENT
  Age: 54 Year
  Sex: Female
  Weight: 76.6579 kg

DRUGS (21)
  1. THALOMID [Suspect]
     Indication: MULTIPLE MYELOMA
     Dosage: 200-100MG, ORAL
     Route: 048
     Dates: start: 20050116, end: 20070627
  2. VELCADE [Suspect]
     Indication: MULTIPLE MYELOMA
     Dosage: 1- 0.8MG/M2
     Dates: start: 20050112, end: 20070213
  3. DEXAMETHASONE TAB [Suspect]
     Indication: MULTIPLE MYELOMA
     Dosage: 40-20MG
     Dates: start: 20050116, end: 20070627
  4. CISPLATIN [Suspect]
     Indication: MULTIPLE MYELOMA
     Dosage: 10-7.5 MG/M2
     Dates: start: 20050116, end: 20051120
  5. ADRIAMYCIN PFS [Suspect]
     Indication: MULTIPLE MYELOMA
     Dosage: 10-7.5 MG/M2
     Dates: start: 20050116, end: 20051120
  6. CYCLOPHOSPHAMIDE [Suspect]
     Indication: MULTIPLE MYELOMA
     Dosage: 400-300MG/M2
     Dates: start: 20050116, end: 20051120
  7. ETOPOSIDE [Suspect]
     Indication: MULTIPLE MYELOMA
     Dosage: 40-30MG/M2
     Dates: start: 20050116, end: 20051120
  8. MELPHALAN (MELPHALAN) [Suspect]
     Indication: MULTIPLE MYELOMA
     Dosage: 200 MG/M2
     Dates: start: 20050329, end: 20050606
  9. PROTONIX (PANTOPRAZOLE) (TABLETS) [Concomitant]
  10. SYNTHROID (LEVOTHYROXINE SODIUM) (TABLETS) [Concomitant]
  11. MINOCYCLINE (MINOCYCLINE) (CAPSULES) [Concomitant]
  12. WELLBUTRIN SR (BUPROPION HYDROCHLORIDE) (TABLETS) [Concomitant]
  13. NEURONTIN [Concomitant]
  14. ACYCLOVIR (ACICLOVIR) (TABLETS) [Concomitant]
  15. SPIRONOLACTONE [Concomitant]
  16. ATIVAN [Concomitant]
  17. LEXAPRO [Concomitant]
  18. LEVAQUIN [Concomitant]
  19. RANITIDINE (RANITIDINE) (TABLETS) [Concomitant]
  20. VITAMIN B6 (PYRIDOXINE HYDROCHLORIDE) (TABLETS) [Concomitant]
  21. DOCUSATE SODIUM (DOCUSATE SODIUM) (TABLETS) [Concomitant]

REACTIONS (1)
  - DEEP VEIN THROMBOSIS [None]
